FAERS Safety Report 8437535-0 (Version None)
Quarter: 2012Q2

REPORT INFORMATION
  Report Type: 
  Country: None (occurrence: None)
  Receive Date: 20120614
  Receipt Date: 20120419
  Transmission Date: 20120825
  Serious: No
  Sender: FDA-Public Use
  Company Number: US-AMGEN-USASP2012019530

PATIENT
  Age: 80 Year
  Sex: Female
  Weight: 56 kg

DRUGS (9)
  1. CLARITIN [Concomitant]
     Indication: SEASONAL ALLERGY
     Dosage: 10 MG, QD
     Route: 048
     Dates: start: 20060320
  2. PROLIA [Suspect]
     Indication: OSTEOPOROSIS POSTMENOPAUSAL
     Dosage: 60 MG, Q6MO
     Dates: start: 20120126
  3. SINVASTATINA [Concomitant]
     Indication: HYPERCHOLESTEROLAEMIA
     Dosage: 20 MG, QD
     Route: 048
     Dates: start: 20111213
  4. PEPSIDOL [Concomitant]
     Indication: GASTROOESOPHAGEAL REFLUX DISEASE
     Dosage: 10 MG, PRN
     Route: 048
     Dates: start: 20001206
  5. PREMARIN [Concomitant]
     Indication: MENOPAUSAL SYMPTOMS
     Dosage: 0.45 MG, 3 TIMES/WK
     Route: 048
     Dates: start: 20031231
  6. NORVASC [Concomitant]
     Indication: HYPERTENSION
     Dosage: 5 MG, QD
     Route: 048
     Dates: start: 20100812
  7. LOTENSIN [Concomitant]
     Indication: HYPERTENSION
     Dosage: 10 MG, QD
     Route: 048
     Dates: start: 20111213
  8. SYNTHROID [Concomitant]
     Indication: HYPOTHYROIDISM
     Dosage: 100 MG, QD
     Route: 048
     Dates: start: 20120320
  9. DITROPAN [Concomitant]
     Dosage: 5 MG, QD
     Route: 048
     Dates: start: 20111213

REACTIONS (8)
  - OROPHARYNGEAL PAIN [None]
  - MYALGIA [None]
  - CONTACT STOMATITIS [None]
  - ORAL MUCOSAL DISCOLOURATION [None]
  - TOOTH DISORDER [None]
  - ORAL PAIN [None]
  - DENTURE WEARER [None]
  - PAIN IN JAW [None]
